FAERS Safety Report 8476380-7 (Version None)
Quarter: 2012Q2

REPORT INFORMATION
  Report Type: 
  Country: None (occurrence: None)
  Receive Date: 20120622
  Receipt Date: 20120611
  Transmission Date: 20120825
  Serious: Yes (Other)
  Sender: FDA-Public Use
  Company Number: FK201201704

PATIENT
  Age: 20 Year
  Sex: Female

DRUGS (5)
  1. VINORELBINE [Suspect]
     Indication: B PRECURSOR TYPE ACUTE LEUKAEMIA
  2. GEMCITABINE [Concomitant]
  3. TOPOTECAN [Suspect]
     Indication: B PRECURSOR TYPE ACUTE LEUKAEMIA
  4. CISPLATIN [Suspect]
     Indication: B PRECURSOR TYPE ACUTE LEUKAEMIA
  5. DEXAMETHASONE [Concomitant]

REACTIONS (1)
  - HYPERAMMONAEMIA [None]
